FAERS Safety Report 9989270 (Version 2)
Quarter: 2014Q3

REPORT INFORMATION
  Report Type: Spontaneous
  Country: US (occurrence: US)
  Receive Date: 20140310
  Receipt Date: 20140904
  Transmission Date: 20150326
  Serious: Yes (Hospitalization, Other)
  Sender: FDA-Public Use
  Company Number: US-BAYER-2014-035481

PATIENT
  Age: 37 Year
  Sex: Female
  Weight: 104.31 kg

DRUGS (6)
  1. YASMIN [Suspect]
     Active Substance: DROSPIRENONE\ETHINYL ESTRADIOL
     Indication: MENSTRUATION IRREGULAR
     Dosage: UNK
     Dates: start: 2005, end: 200604
  2. ALLEGRA-D [FEXOFENADINE HYDROCHLORIDE,PSEUDOEPHEDRINE HYDROCHLORID [Concomitant]
     Dosage: UNK
     Dates: start: 1990
  3. ALDACTONE [Concomitant]
     Active Substance: SPIRONOLACTONE
     Dosage: UNK
     Dates: start: 1990
  4. SPIRONOLACTONE. [Concomitant]
     Active Substance: SPIRONOLACTONE
  5. ZYRTEC-D [Concomitant]
     Active Substance: CETIRIZINE HYDROCHLORIDE\PSEUDOEPHEDRINE HYDROCHLORIDE
     Dosage: UNK
     Dates: start: 1990
  6. CALCITRATE [CALCIUM] [Concomitant]
     Dosage: UNK
     Dates: start: 2005

REACTIONS (8)
  - Deep vein thrombosis [Recovering/Resolving]
  - Pain [Recovering/Resolving]
  - Joint swelling [Recovering/Resolving]
  - Thrombosis [None]
  - Injury [Recovering/Resolving]
  - General physical health deterioration [Recovering/Resolving]
  - Peripheral venous disease [Recovering/Resolving]
  - Abdominal pain [None]

NARRATIVE: CASE EVENT DATE: 200604
